FAERS Safety Report 16688239 (Version 8)
Quarter: 2020Q1

REPORT INFORMATION
  Report Type: Report from Study
  Country: US (occurrence: US)
  Receive Date: 20190809
  Receipt Date: 20200318
  Transmission Date: 20200409
  Serious: Yes (Hospitalization)
  Sender: FDA-Public Use
  Company Number: US-ACTELION-A-US2019-189997

PATIENT
  Age: 45 Year
  Sex: Male
  Weight: 68.93 kg

DRUGS (12)
  1. ADCIRCA [Concomitant]
     Active Substance: TADALAFIL
  2. VELETRI [Suspect]
     Active Substance: EPOPROSTENOL
     Dosage: 26 NG/KG, PER MIN
     Route: 042
  3. VELETRI [Suspect]
     Active Substance: EPOPROSTENOL
     Dosage: 18 NG/KG, PER MIN
     Route: 042
  4. VELETRI [Suspect]
     Active Substance: EPOPROSTENOL
     Dosage: 21.28 NG/KG, PER MIN
     Route: 042
  5. VELETRI [Suspect]
     Active Substance: EPOPROSTENOL
     Indication: PULMONARY ARTERIAL HYPERTENSION
     Dosage: 32 NG/KG, PER MIN
     Route: 042
  6. VELETRI [Suspect]
     Active Substance: EPOPROSTENOL
     Dosage: 16 NG/KG, PER MIN
     Route: 042
  7. VELETRI [Suspect]
     Active Substance: EPOPROSTENOL
     Dosage: 24 NG/KG, PER MIN
     Route: 042
  8. VELETRI [Suspect]
     Active Substance: EPOPROSTENOL
     Dosage: 20.28 NG/KG, PER MIN
     Route: 042
  9. TYVASO [Concomitant]
     Active Substance: TREPROSTINIL
  10. LETAIRIS [Concomitant]
     Active Substance: AMBRISENTAN
  11. XARELTO [Concomitant]
     Active Substance: RIVAROXABAN
  12. VELETRI [Suspect]
     Active Substance: EPOPROSTENOL
     Dosage: 16 NG/KG, PER MIN
     Route: 042

REACTIONS (19)
  - Pain in extremity [Not Recovered/Not Resolved]
  - Headache [Unknown]
  - Palpitations [Not Recovered/Not Resolved]
  - Catheter site cellulitis [Recovered/Resolved]
  - Catheter site irritation [Unknown]
  - Drug titration error [Unknown]
  - Catheterisation cardiac abnormal [Unknown]
  - Weight decreased [Unknown]
  - Diarrhoea [Not Recovered/Not Resolved]
  - Pain in jaw [Unknown]
  - Device leakage [Unknown]
  - Swelling [Unknown]
  - Frequent bowel movements [Unknown]
  - Chest pain [Unknown]
  - Dyspnoea exertional [Not Recovered/Not Resolved]
  - Abdominal distension [Unknown]
  - Catheter site pruritus [Unknown]
  - Cardiac output increased [Unknown]
  - Catheter site erythema [Unknown]

NARRATIVE: CASE EVENT DATE: 20200127
